FAERS Safety Report 9177864 (Version 2)
Quarter: 2013Q2

REPORT INFORMATION
  Report Type: Report from Study
  Country: CA (occurrence: CA)
  Receive Date: 20130321
  Receipt Date: 20130401
  Transmission Date: 20140414
  Serious: Yes (Hospitalization, Other)
  Sender: FDA-Public Use
  Company Number: CA-ABBOTT-12P-028-1018488-00

PATIENT
  Age: 49 Year
  Sex: Male
  Weight: 86.26 kg

DRUGS (6)
  1. HUMIRA [Suspect]
     Indication: CROHN^S DISEASE
     Dosage: LATEST DOSE :20-NOV-2012
     Route: 058
     Dates: start: 20120925, end: 201301
  2. AZATHIOPRINE [Concomitant]
     Indication: CROHN^S DISEASE
     Route: 048
  3. INSULIN [Concomitant]
     Indication: DIABETES MELLITUS
     Route: 058
  4. APO METFORMIN [Concomitant]
     Indication: DIABETES MELLITUS
     Route: 048
  5. IMMUNOMODULATOR [Concomitant]
     Indication: CROHN^S DISEASE
  6. 5-AMINOSALICYCLIC ACID [Concomitant]
     Indication: CROHN^S DISEASE

REACTIONS (9)
  - Gastrointestinal infection [Unknown]
  - Haematochezia [Not Recovered/Not Resolved]
  - Muscle spasms [Not Recovered/Not Resolved]
  - Abdominal pain upper [Not Recovered/Not Resolved]
  - Back pain [Not Recovered/Not Resolved]
  - Frequent bowel movements [Not Recovered/Not Resolved]
  - Colostomy [Unknown]
  - Intestinal resection [Unknown]
  - Drug ineffective [Unknown]
